FAERS Safety Report 5981288-2 (Version None)
Quarter: 2008Q4

REPORT INFORMATION
  Report Type: 
  Country: None (occurrence: None)
  Receive Date: 20081126
  Receipt Date: 20081116
  Transmission Date: 20090506
  Serious: Yes (Death, Hospitalization, Other)
  Sender: FDA-Public Use
  Company Number: A-CH2008-22734

PATIENT
  Age: 85 Year
  Sex: Male
  Weight: 80 kg

DRUGS (13)
  1. TRACLEER [Suspect]
     Indication: PULMONARY ARTERIAL HYPERTENSION
     Dosage: 125 MG, BID, ORAL, 62.5 MG, BID, ORAL
     Route: 048
     Dates: start: 20070323, end: 20070416
  2. TRACLEER [Suspect]
     Indication: PULMONARY ARTERIAL HYPERTENSION
     Dosage: 125 MG, BID, ORAL, 62.5 MG, BID, ORAL
     Route: 048
     Dates: start: 20070417, end: 20080710
  3. DURAGESIC-100 [Concomitant]
  4. SAROTEN (AMITRIPTYLINE HYDROCHLOLRIDE) [Concomitant]
  5. BISOPROLOL FUMARATE [Concomitant]
  6. LASIX [Concomitant]
  7. HYDROXYUREA [Concomitant]
  8. CAL DE CE (CALCIUM GLUCEPTATE, COLECALCIFEROL, ASCORBIC ACID) [Concomitant]
  9. ALPRAZOLAM [Concomitant]
  10. ACETYLSALICYLIC ACID SRT [Concomitant]
  11. ALLOPURINOL [Concomitant]
  12. NYOLOL (TIMOLOL MALEATE) [Concomitant]
  13. NOVALGIN (METAMIZOLE SODIUM) [Concomitant]

REACTIONS (7)
  - ALANINE AMINOTRANSFERASE INCREASED [None]
  - ASPARTATE AMINOTRANSFERASE INCREASED [None]
  - BLOOD ALKALINE PHOSPHATASE INCREASED [None]
  - BLOOD BILIRUBIN INCREASED [None]
  - CARDIAC FAILURE [None]
  - CARDIOMYOPATHY ACUTE [None]
  - WHITE BLOOD CELL COUNT INCREASED [None]
